FAERS Safety Report 12273914 (Version 1)
Quarter: 2016Q2

REPORT INFORMATION
  Report Type: Spontaneous
  Country: US (occurrence: US)
  Receive Date: 20160415
  Receipt Date: 20160415
  Transmission Date: 20160815
  Serious: No
  Sender: FDA-Public Use
  Company Number: US-ALLERGAN-1522361US

PATIENT
  Sex: Female
  Weight: 90.7 kg

DRUGS (1)
  1. LATISSE [Suspect]
     Active Substance: BIMATOPROST
     Indication: GROWTH OF EYELASHES
     Dosage: 2 GTT, QHS
     Route: 061
     Dates: start: 201509, end: 201509

REACTIONS (7)
  - Off label use [Unknown]
  - Visual impairment [Recovering/Resolving]
  - Eye swelling [Recovering/Resolving]
  - Photophobia [Recovered/Resolved]
  - Wrong technique in product usage process [Unknown]
  - Eye irritation [Recovered/Resolved]
  - Ocular hyperaemia [Recovered/Resolved]
